FAERS Safety Report 15381146 (Version 5)
Quarter: 2019Q2

REPORT INFORMATION
  Report Type: Report from Study
  Country: US (occurrence: US)
  Receive Date: 20180913
  Receipt Date: 20190627
  Transmission Date: 20190711
  Serious: Yes (Hospitalization, Other)
  Sender: FDA-Public Use
  Company Number: US-OTSUKA-2018_024436

PATIENT
  Age: 34 Year
  Sex: Female

DRUGS (17)
  1. TOLVAPTAN [Suspect]
     Active Substance: TOLVAPTAN
     Dosage: 30 MG, QD (8 HOURS AFTER)
     Route: 048
     Dates: start: 2018
  2. SAMSCA [Suspect]
     Active Substance: TOLVAPTAN
     Dosage: 15 MG, UNK
     Route: 065
     Dates: start: 20180531
  3. ZOFRAN [Concomitant]
     Active Substance: ONDANSETRON HYDROCHLORIDE
     Indication: PRODUCT USED FOR UNKNOWN INDICATION
     Dosage: UNK
     Route: 065
  4. TOLVAPTAN [Suspect]
     Active Substance: TOLVAPTAN
     Dosage: 60 MG, QD (EVERY MORNING)
     Route: 048
     Dates: start: 2018
  5. TOLVAPTAN [Suspect]
     Active Substance: TOLVAPTAN
     Dosage: 30 MG, QD
     Route: 048
     Dates: start: 20190616
  6. SAMSCA [Suspect]
     Active Substance: TOLVAPTAN
     Dosage: UNK
     Route: 065
  7. CYCLOBENZAPRIN [Concomitant]
     Active Substance: CYCLOBENZAPRINE
     Indication: PRODUCT USED FOR UNKNOWN INDICATION
     Dosage: UNK
     Route: 065
  8. TOLVAPTAN [Suspect]
     Active Substance: TOLVAPTAN
     Indication: CONGENITAL CYSTIC KIDNEY DISEASE
     Dosage: 45 MG, QD (EVERY MORNING)
     Route: 048
     Dates: start: 20180616
  9. LISINOPRIL. [Concomitant]
     Active Substance: LISINOPRIL
     Indication: PRODUCT USED FOR UNKNOWN INDICATION
     Dosage: UNK
     Route: 065
  10. TOLVAPTAN [Suspect]
     Active Substance: TOLVAPTAN
     Dosage: 15 MG, UNK
     Route: 048
     Dates: start: 20180630
  11. TOLVAPTAN [Suspect]
     Active Substance: TOLVAPTAN
     Dosage: 15 MG, QD (8 HOURS AFTER)
     Route: 048
     Dates: start: 20180616
  12. TOLVAPTAN [Suspect]
     Active Substance: TOLVAPTAN
     Dosage: 45 MG, UNK
     Route: 048
     Dates: start: 20180630
  13. TOLVAPTAN [Suspect]
     Active Substance: TOLVAPTAN
     Dosage: 90 MG, QD
     Route: 048
     Dates: start: 20190616
  14. TOPAMAX [Concomitant]
     Active Substance: TOPIRAMATE
     Indication: PRODUCT USED FOR UNKNOWN INDICATION
     Dosage: UNK
     Route: 065
  15. TOLVAPTAN [Suspect]
     Active Substance: TOLVAPTAN
     Dosage: 45 MG, QD (EVERY MORNING)
     Route: 048
     Dates: start: 2018
  16. TOLVAPTAN [Suspect]
     Active Substance: TOLVAPTAN
     Dosage: 15 MG, QD (8 HOURS AFTER)
     Route: 048
     Dates: start: 2018
  17. SAMSCA [Suspect]
     Active Substance: TOLVAPTAN
     Indication: PRODUCT USED FOR UNKNOWN INDICATION
     Dosage: 30 MG, UNK
     Route: 065
     Dates: start: 20180531

REACTIONS (18)
  - Blood pressure decreased [Unknown]
  - Decreased appetite [Unknown]
  - Influenza [Unknown]
  - Wrong product administered [Unknown]
  - Weight decreased [Unknown]
  - Product dose omission [Unknown]
  - Retching [Unknown]
  - Pollakiuria [Not Recovered/Not Resolved]
  - Abdominal distension [Unknown]
  - Polyuria [Not Recovered/Not Resolved]
  - Ankle operation [Recovering/Resolving]
  - Hypersensitivity [Unknown]
  - Fatigue [Unknown]
  - Surgery [Not Recovered/Not Resolved]
  - Food poisoning [Not Recovered/Not Resolved]
  - Headache [Not Recovered/Not Resolved]
  - Thirst [Not Recovered/Not Resolved]
  - Ill-defined disorder [Unknown]

NARRATIVE: CASE EVENT DATE: 20180722
